FAERS Safety Report 7964615-6 (Version None)
Quarter: 2011Q4

REPORT INFORMATION
  Report Type: 
  Country: None (occurrence: None)
  Receive Date: 20111205
  Receipt Date: 20111205
  Transmission Date: 20120403
  Serious: No
  Sender: FDA-Public Use
  Company Number: None

PATIENT
  Sex: Male
  Weight: 81.1 kg

DRUGS (2)
  1. CISPLATIN [Suspect]
     Dosage: 160 MG
  2. ETOPOSIDE [Suspect]
     Dosage: 600 MG

REACTIONS (1)
  - NEUTROPHIL COUNT DECREASED [None]
